FAERS Safety Report 9973714 (Version 2)
Quarter: 2014Q1

REPORT INFORMATION
  Report Type: Spontaneous
  Country: AT (occurrence: AT)
  Receive Date: 20140306
  Receipt Date: 20140317
  Transmission Date: 20141002
  Serious: Yes (Other)
  Sender: FDA-Public Use
  Company Number: PHHY2014AT026524

PATIENT
  Sex: Female
  Weight: 89 kg

DRUGS (3)
  1. FEMARA [Suspect]
     Indication: BREAST CANCER
     Dosage: 1 MG, UNK
     Dates: start: 201002, end: 20130718
  2. ANASTROZOL [Suspect]
     Indication: BREAST CANCER
     Dosage: UNK UKN, UNK
  3. FULVESTRANT [Suspect]
     Indication: BREAST CANCER
     Dosage: UNK UKN, UNK

REACTIONS (5)
  - Hepatotoxicity [Unknown]
  - Liver function test abnormal [Unknown]
  - Metastases to lymph nodes [Unknown]
  - Breast cancer [Unknown]
  - Malignant neoplasm progression [Unknown]
